FAERS Safety Report 15550905 (Version 1)
Quarter: 2018Q4

REPORT INFORMATION
  Report Type: Spontaneous
  Country: US (occurrence: US)
  Receive Date: 20181025
  Receipt Date: 20181025
  Transmission Date: 20190205
  Serious: No
  Sender: FDA-Public Use
  Company Number: US-ASTRAZENECA-2018SF27279

PATIENT
  Sex: Female
  Weight: 98 kg

DRUGS (15)
  1. BENADRYL [Concomitant]
     Active Substance: DIPHENHYDRAMINE HYDROCHLORIDE
     Indication: CONJUNCTIVAL HYPERAEMIA
     Route: 048
  2. ATORVASTATIN [Concomitant]
     Active Substance: ATORVASTATIN
     Indication: BLOOD CHOLESTEROL ABNORMAL
     Route: 048
  3. COSAMIN DS [Concomitant]
     Indication: ARTHRITIS
     Route: 048
  4. ZYRTEC [Concomitant]
     Active Substance: CETIRIZINE HYDROCHLORIDE
     Indication: CARDIAC FAILURE CONGESTIVE
     Route: 048
  5. HCG HORMONE [Concomitant]
     Indication: WEIGHT DECREASED
     Dosage: 2.0ML UNKNOWN
     Route: 058
  6. BRILINTA [Suspect]
     Active Substance: TICAGRELOR
     Indication: STENT PLACEMENT
     Route: 048
     Dates: start: 20180813
  7. VITAMIN B NOS [Concomitant]
     Active Substance: VITAMIN B
     Indication: VITAMIN B12 DEFICIENCY
     Route: 065
  8. TUMERIC FOR CURCUMIN [Concomitant]
     Indication: AMNESIA
     Route: 048
  9. PANTOPRAZOLE SODIUM. [Concomitant]
     Active Substance: PANTOPRAZOLE SODIUM
     Indication: GASTROOESOPHAGEAL REFLUX DISEASE
     Route: 048
  10. ASPIRIN. [Concomitant]
     Active Substance: ASPIRIN
     Indication: CARDIAC DISORDER
     Route: 048
  11. VITAMIN D [Concomitant]
     Active Substance: CHOLECALCIFEROL
     Indication: VITAMIN D DECREASED
     Route: 048
  12. BENZONATATE. [Concomitant]
     Active Substance: BENZONATATE
     Indication: COUGH
     Dosage: 100.0MG AS REQUIRED
     Route: 048
  13. BISACODYL. [Concomitant]
     Active Substance: BISACODYL
     Indication: CONSTIPATION
     Dosage: 5.0MG AS REQUIRED
     Route: 048
  14. ZOLPIDEM [Concomitant]
     Active Substance: ZOLPIDEM\ZOLPIDEM TARTRATE
     Indication: SLEEP DISORDER
     Route: 048
  15. SYMBICORT [Suspect]
     Active Substance: BUDESONIDE\FORMOTEROL FUMARATE DIHYDRATE
     Indication: DYSPNOEA
     Dosage: 80 OVER 4.5 MCG BY INHALATION FREQUENCY IS OCCASIONALLY AS REQUIRED
     Route: 055

REACTIONS (14)
  - Bronchitis [Recovering/Resolving]
  - Polyp [Unknown]
  - Feeling abnormal [Unknown]
  - Hypersomnia [Recovered/Resolved]
  - Dyspnoea exertional [Not Recovered/Not Resolved]
  - Off label use [Unknown]
  - Burning sensation [Unknown]
  - Cough [Unknown]
  - Fatigue [Unknown]
  - Obesity [Not Recovered/Not Resolved]
  - Chest discomfort [Unknown]
  - Product use issue [Unknown]
  - Memory impairment [Not Recovered/Not Resolved]
  - Rotator cuff syndrome [Unknown]
